FAERS Safety Report 10259619 (Version 2)
Quarter: 2014Q2

REPORT INFORMATION
  Report Type: Report from Study
  Country: US (occurrence: US)
  Receive Date: 20140625
  Receipt Date: 20140625
  Transmission Date: 20141212
  Serious: Yes (Hospitalization)
  Sender: FDA-Public Use
  Company Number: PHEH2013US020880

PATIENT
  Sex: Male

DRUGS (3)
  1. CLOZARIL [Suspect]
     Indication: DEMENTIA
     Dosage: UNK
  2. CLOZARIL [Suspect]
     Indication: AGITATION
     Dosage: UNK
  3. CLOZARIL [Suspect]
     Indication: OFF LABEL USE

REACTIONS (4)
  - Parkinson^s disease [Unknown]
  - Psychotic disorder [Unknown]
  - Dementia [Unknown]
  - Agitation [Unknown]
